FAERS Safety Report 7650386-X (Version None)
Quarter: 2011Q3

REPORT INFORMATION
  Report Type: 
  Country: None (occurrence: None)
  Receive Date: 20110802
  Receipt Date: 20110729
  Transmission Date: 20111222
  Serious: Yes (Death, Hospitalization, Other)
  Sender: FDA-Public Use
  Company Number: ES-CELGENEUS-144-C5013-11031049

PATIENT
  Sex: Female
  Weight: 64 kg

DRUGS (8)
  1. LENALIDOMIDE [Suspect]
     Dosage: 25 MILLIGRAM
     Route: 048
     Dates: start: 20110217, end: 20110303
  2. LENALIDOMIDE [Suspect]
     Indication: MULTIPLE MYELOMA
     Dosage: 25 MILLIGRAM
     Route: 048
     Dates: start: 20101124
  3. DEXAMETHASONE [Suspect]
     Dosage: 20 MILLIGRAM
     Route: 065
     Dates: start: 20110217, end: 20110225
  4. ENOXAPARIN SODIUM [Concomitant]
     Indication: THROMBOSIS PROPHYLAXIS
     Dosage: 40 MILLIGRAM
     Route: 058
     Dates: start: 20101210
  5. BROMAZEPAM [Concomitant]
     Dosage: 4.5 MILLIGRAM
     Route: 048
     Dates: start: 20101013
  6. METAMIZOLE [Concomitant]
     Indication: BACK PAIN
     Dosage: 1725 MILLIGRAM
     Route: 048
     Dates: start: 20101115
  7. DEXAMETHASONE [Suspect]
     Indication: MULTIPLE MYELOMA
     Dosage: 20 MILLIGRAM
     Route: 065
     Dates: start: 20101124
  8. ACETAMINOPHEN [Concomitant]
     Indication: BACK PAIN
     Dosage: 3 GRAM
     Route: 048
     Dates: start: 20101013

REACTIONS (1)
  - COLON CANCER STAGE III [None]
